FAERS Safety Report 6001758-0 (Version None)
Quarter: 2008Q4

REPORT INFORMATION
  Report Type: 
  Country: None (occurrence: None)
  Receive Date: 20081215
  Receipt Date: 20081203
  Transmission Date: 20090506
  Serious: Yes (Other)
  Sender: FDA-Public Use
  Company Number: US-GENENTECH-272897

PATIENT

DRUGS (2)
  1. BEVACIZUMAB [Suspect]
     Indication: MALIGNANT GLIOMA
     Dosage: 10 MG/KG, DAYS 1+15
     Route: 042
     Dates: start: 20061113
  2. IRINOTECAN HCL [Concomitant]
     Indication: MALIGNANT GLIOMA
     Dosage: UNK MG/M2, Q2W

REACTIONS (1)
  - SPEECH DISORDER [None]
